FAERS Safety Report 16260677 (Version 3)
Quarter: 2019Q2

REPORT INFORMATION
  Report Type: Other
  Country: GB (occurrence: GB)
  Receive Date: 20190501
  Receipt Date: 20190521
  Transmission Date: 20190711
  Serious: Yes (Disabling)
  Sender: FDA-Public Use
  Company Number: GB-HERITAGE PHARMACEUTICALS-2019HTG00187

PATIENT
  Age: 27 Year

DRUGS (4)
  1. FLUOXETINE [Suspect]
     Active Substance: FLUOXETINE HYDROCHLORIDE
     Indication: MIXED ANXIETY AND DEPRESSIVE DISORDER
     Dosage: 1 DOSAGE UNITS, 1X/DAY
     Route: 048
     Dates: start: 20190315, end: 20190327
  2. FUCIDIN H [Concomitant]
     Dosage: 3 DOSAGE UNITS, 1X/DAY
     Route: 061
     Dates: start: 20190315
  3. ZOPICLONE [Concomitant]
     Active Substance: ZOPICLONE
     Dosage: 7.5 MG, 1X/DAY AT NIGHT
     Dates: start: 20190315
  4. MIRTAZAPINE. [Concomitant]
     Active Substance: MIRTAZAPINE
     Dosage: 30 MG, 1X/DAY AT NIGHT
     Dates: start: 20190327

REACTIONS (1)
  - Anger [Recovering/Resolving]

NARRATIVE: CASE EVENT DATE: 20190315
